FAERS Safety Report 15105530 (Version 2)
Quarter: 2018Q3

REPORT INFORMATION
  Report Type: Report from Study
  Country: CA (occurrence: CA)
  Receive Date: 20180704
  Receipt Date: 20180801
  Transmission Date: 20181010
  Serious: Yes (Hospitalization)
  Sender: FDA-Public Use
  Company Number: CA-BIOGEN-2018BI00603981

PATIENT
  Age: 56 Year
  Sex: Male

DRUGS (1)
  1. FAMPYRA [Suspect]
     Active Substance: DALFAMPRIDINE
     Indication: GAIT DISTURBANCE
     Route: 048
     Dates: start: 20150721, end: 20180515

REACTIONS (1)
  - Aspiration [Unknown]

NARRATIVE: CASE EVENT DATE: 20180514
